FAERS Safety Report 5040783-3 (Version None)
Quarter: 2006Q2

REPORT INFORMATION
  Report Type: 
  Country: None (occurrence: None)
  Receive Date: 20060630
  Receipt Date: 20060630
  Transmission Date: 20061013
  Serious: Yes (Hospitalization)
  Sender: FDA-Public Use
  Company Number: None

PATIENT
  Age: 70 Year
  Sex: Male
  Weight: 51.7101 kg

DRUGS (2)
  1. ZOSYN [Suspect]
     Dosage: 3.375 MG    Q6H   IV
     Route: 042
     Dates: start: 20060623, end: 20060629
  2. MOXIFLOXACIN   400 MG [Suspect]
     Dosage: 400 MG  Q24 HRS  IV
     Route: 042
     Dates: start: 20060623, end: 20060629

REACTIONS (1)
  - CLOSTRIDIAL INFECTION [None]
